FAERS Safety Report 20697384 (Version 2)
Quarter: 2022Q2

REPORT INFORMATION
  Report Type: Spontaneous
  Country: US (occurrence: US)
  Receive Date: 20220411
  Receipt Date: 20220419
  Transmission Date: 20220721
  Serious: Yes (Hospitalization)
  Sender: FDA-Public Use
  Company Number: US-PFIZER INC-202200378443

PATIENT
  Age: 63 Year
  Sex: Female

DRUGS (1)
  1. IBRANCE [Suspect]
     Active Substance: PALBOCICLIB
     Dosage: 125 MG
     Dates: start: 20220304

REACTIONS (13)
  - Lung disorder [Unknown]
  - Disturbance in attention [Recovered/Resolved]
  - Nausea [Recovered/Resolved]
  - Fatigue [Recovering/Resolving]
  - Fatigue [Unknown]
  - Asthenia [Unknown]
  - Ageusia [Unknown]
  - White blood cell count increased [Unknown]
  - Increased appetite [Unknown]
  - Rash [Unknown]
  - Dry skin [Unknown]
  - Burning sensation [Unknown]
  - Skin disorder [Unknown]

NARRATIVE: CASE EVENT DATE: 20220304
